FAERS Safety Report 4980334-2 (Version None)
Quarter: 2006Q2

REPORT INFORMATION
  Report Type: 
  Country: None (occurrence: None)
  Receive Date: 20060418
  Receipt Date: 20060410
  Transmission Date: 20061013
  Serious: Yes (Other)
  Sender: FDA-Public Use
  Company Number: 2006050242

PATIENT
  Sex: Female
  Weight: 86.1834 kg

DRUGS (5)
  1. ZYRTEC [Suspect]
     Indication: HYPERSENSITIVITY
     Dosage: 10 MG (10 MG, 1 IN 1 D), ORAL
     Route: 048
  2. FLOVENT [Suspect]
     Indication: ASTHMA
     Dates: start: 20050101
  3. NASONEX [Suspect]
     Indication: HYPERSENSITIVITY
     Dates: start: 20050101
  4. SINGULAIR [Suspect]
     Indication: ASTHMA
     Dates: start: 20050101
  5. CLARITIN-D [Suspect]
     Indication: HYPERSENSITIVITY
     Dates: start: 20050101, end: 20050101

REACTIONS (6)
  - ASTHMA [None]
  - BLOOD PRESSURE INCREASED [None]
  - FEELING ABNORMAL [None]
  - MULTIPLE ALLERGIES [None]
  - SOMNOLENCE [None]
  - TOTAL LUNG CAPACITY DECREASED [None]
